FAERS Safety Report 7539081-5 (Version None)
Quarter: 2011Q2

REPORT INFORMATION
  Report Type: 
  Country: None (occurrence: None)
  Receive Date: 20110610
  Receipt Date: 20011218
  Transmission Date: 20111010
  Serious: Yes (Hospitalization)
  Sender: FDA-Public Use
  Company Number: PHBS2001CA12259

PATIENT
  Sex: Female

DRUGS (7)
  1. DULCOLAX [Concomitant]
     Dosage: 5 MG, QD
  2. SERTRALINE HYDROCHLORIDE [Concomitant]
     Dosage: 50 MG, QD
  3. LEVOTHYROXINE SODIUM [Concomitant]
     Indication: HYPOTHYROIDISM
     Dosage: 0.1 MG, QD
  4. CLOZAPINE [Suspect]
     Indication: SCHIZOPHRENIA
     Dosage: 525 MG, QD
     Route: 048
     Dates: start: 19940429
  5. FENOFIBRATE [Concomitant]
  6. HUMULIN R [Concomitant]
     Indication: DIABETES MELLITUS
  7. CLONAZEPAM [Concomitant]
     Dosage: 2 MG, QD

REACTIONS (4)
  - CEREBROVASCULAR ACCIDENT [None]
  - VENOUS THROMBOSIS LIMB [None]
  - CEREBRAL ARTERY OCCLUSION [None]
  - HEMIPLEGIA [None]
